FAERS Safety Report 4410581-X (Version None)
Quarter: 2004Q3

REPORT INFORMATION
  Report Type: 
  Country: None (occurrence: None)
  Receive Date: 20040726
  Receipt Date: 20040712
  Transmission Date: 20050211
  Serious: Yes (Hospitalization)
  Sender: FDA-Public Use
  Company Number: US-JNJFOC-20040301409

PATIENT
  Age: 66 Year
  Sex: Female
  Weight: 72.5755 kg

DRUGS (12)
  1. DURAGESIC [Suspect]
     Indication: PAIN
     Dosage: 25 UG/HR, 1 IN 72 HOUR, TRANSDERMAL;  50 UG/HR, 1 IN 72 HUR, TRANSDERMAL
     Route: 062
     Dates: start: 20031210, end: 20040128
  2. DURAGESIC [Suspect]
     Indication: PAIN
     Dosage: 25 UG/HR, 1 IN 72 HOUR, TRANSDERMAL;  50 UG/HR, 1 IN 72 HUR, TRANSDERMAL
     Route: 062
     Dates: start: 20040128, end: 20040308
  3. PROZAC [Concomitant]
  4. WELLBUTRIN [Concomitant]
  5. BEXTRA [Concomitant]
  6. TRANXENE [Concomitant]
  7. SKELAXIN [Concomitant]
  8. SINGULAR (MONTELUKAST SODIUM) [Concomitant]
  9. AMBIEN [Concomitant]
  10. DARVOCET [Concomitant]
  11. SERAQUEL (ALL OTHER THERAPEUTIC PRODUCTS) [Concomitant]
  12. QUETIAPINE FUMARATE (QUETIAPINE FUMARATE) [Concomitant]

REACTIONS (4)
  - DIARRHOEA [None]
  - OEDEMA PERIPHERAL [None]
  - PNEUMONIA [None]
  - WEIGHT DECREASED [None]
